FAERS Safety Report 11908449 (Version 3)
Quarter: 2016Q1

REPORT INFORMATION
  Report Type: Spontaneous
  Country: US (occurrence: US)
  Receive Date: 20160111
  Receipt Date: 20160126
  Transmission Date: 20160526
  Serious: No
  Sender: FDA-Public Use
  Company Number: US-GILEAD-2016-0191173

PATIENT
  Age: 51 Year
  Sex: Male
  Weight: 87 kg

DRUGS (3)
  1. HARVONI [Suspect]
     Active Substance: LEDIPASVIR\SOFOSBUVIR
     Indication: HEPATITIS C
     Dosage: UNK
     Route: 065
     Dates: start: 201411, end: 201504
  2. SOMATROPIN [Concomitant]
     Active Substance: SOMATROPIN
  3. LEVOTHYROXINE. [Concomitant]
     Active Substance: LEVOTHYROXINE
     Dosage: 0.25 MG, UNK
     Route: 048

REACTIONS (5)
  - Tendon disorder [Unknown]
  - Constipation [Not Recovered/Not Resolved]
  - Pain in extremity [Not Recovered/Not Resolved]
  - Flatulence [Unknown]
  - Irritable bowel syndrome [Unknown]
